FAERS Safety Report 17838039 (Version 1)
Quarter: 2020Q2

REPORT INFORMATION
  Report Type: Spontaneous
  Country: US (occurrence: US)
  Receive Date: 20200529
  Receipt Date: 20200529
  Transmission Date: 20200714
  Serious: No
  Sender: FDA-Public Use
  Company Number: US-UCBSA-2019029457

PATIENT
  Sex: Male

DRUGS (14)
  1. TELMISARTAN. [Concomitant]
     Active Substance: TELMISARTAN
  2. VITAMIN D2 [Concomitant]
     Active Substance: ERGOCALCIFEROL
  3. PIOGLITAZONE. [Concomitant]
     Active Substance: PIOGLITAZONE
  4. BYDUREON [Concomitant]
     Active Substance: EXENATIDE
  5. GABAPENTIN. [Concomitant]
     Active Substance: GABAPENTIN
  6. OMEPRAZOLE. [Concomitant]
     Active Substance: OMEPRAZOLE
  7. METOCLOPRAMIDE. [Concomitant]
     Active Substance: METOCLOPRAMIDE
  8. TRESIBA [Concomitant]
     Active Substance: INSULIN DEGLUDEC
  9. CELECOXIB. [Concomitant]
     Active Substance: CELECOXIB
  10. METFORMIN [Concomitant]
     Active Substance: METFORMIN HYDROCHLORIDE
  11. HUMALOG [Concomitant]
     Active Substance: INSULIN LISPRO
  12. LATANOPROST. [Concomitant]
     Active Substance: LATANOPROST
  13. CIMZIA [Suspect]
     Active Substance: CERTOLIZUMAB PEGOL
     Indication: PSORIASIS
     Dosage: 400 MILLIGRAM, EV 4 WEEKS
     Route: 058
  14. PRAVASTATIN. [Concomitant]
     Active Substance: PRAVASTATIN

REACTIONS (1)
  - Psoriasis [Unknown]
